FAERS Safety Report 22613431 (Version 1)
Quarter: 2023Q2

REPORT INFORMATION
  Report Type: Spontaneous
  Country: DE (occurrence: DE)
  Receive Date: 20230619
  Receipt Date: 20230619
  Transmission Date: 20230722
  Serious: Yes (Other)
  Sender: FDA-Public Use
  Company Number: DE-DECIPHERA PHARMACEUTICALS LLC-2023DE000535

PATIENT
  Age: 65 Year
  Sex: Female

DRUGS (1)
  1. QINLOCK [Suspect]
     Active Substance: RIPRETINIB
     Indication: Malignant melanoma
     Dosage: 150 MILLIGRAM, QD
     Route: 048
     Dates: start: 20230223

REACTIONS (4)
  - Metastases to kidney [Unknown]
  - Metastases to central nervous system [Unknown]
  - Malignant neoplasm progression [Unknown]
  - Off label use [Unknown]

NARRATIVE: CASE EVENT DATE: 20230223
